FAERS Safety Report 13350606 (Version 1)
Quarter: 2017Q1

REPORT INFORMATION
  Report Type: Report from Study
  Country: US (occurrence: US)
  Receive Date: 20170320
  Receipt Date: 20170320
  Transmission Date: 20170429
  Serious: Yes (Hospitalization)
  Sender: FDA-Public Use
  Company Number: PHHO2011US022816

PATIENT
  Age: 49 Year
  Sex: Male
  Weight: 81.1 kg

DRUGS (4)
  1. SENNA [Concomitant]
     Active Substance: SENNA LEAF\SENNOSIDES\SENNOSIDES A AND B
     Indication: CONSTIPATION
     Dosage: 1 DF, ONCE/SINGLE
     Route: 048
     Dates: start: 20111123, end: 20111123
  2. DABRAFENIB [Suspect]
     Active Substance: DABRAFENIB
     Indication: MALIGNANT MELANOMA
     Dosage: 150 MG, BID
     Route: 048
     Dates: start: 20111111, end: 20111116
  3. NORMAL SALINE [Concomitant]
     Active Substance: SODIUM CHLORIDE
     Indication: PRODUCT USED FOR UNKNOWN INDICATION
     Dosage: 1000 ML, ONCE/SINGLE
     Route: 042
     Dates: start: 20111123, end: 20111123
  4. DIATRIZOATE [Concomitant]
     Active Substance: DIATRIZOATE MEGLUMINE
     Indication: COMPUTERISED TOMOGRAM
     Dosage: 1000 ML, ONCE/SINGLE
     Route: 048
     Dates: start: 20111121, end: 20111121

REACTIONS (6)
  - Oropharyngeal candidiasis [Recovered/Resolved]
  - Renal failure [Recovered/Resolved]
  - Vomiting [Recovered/Resolved]
  - Granulomatous liver disease [Recovered/Resolved]
  - Gastrooesophageal reflux disease [Recovered/Resolved]
  - Thrombocytopenia [Recovered/Resolved]

NARRATIVE: CASE EVENT DATE: 20111115
